FAERS Safety Report 4409092-7 (Version None)
Quarter: 2004Q3

REPORT INFORMATION
  Report Type: 
  Country: None (occurrence: None)
  Receive Date: 20040727
  Receipt Date: 20040720
  Transmission Date: 20050211
  Serious: Yes (Other)
  Sender: FDA-Public Use
  Company Number: US-MERCK-0407USA01536

PATIENT
  Age: 63 Year
  Sex: Female
  Weight: 32 kg

DRUGS (13)
  1. ASPIRIN [Concomitant]
     Route: 065
  2. COREG [Suspect]
     Indication: CARDIAC DISORDER
     Route: 048
  3. COREG [Suspect]
     Route: 048
  4. DIGOXIN [Concomitant]
     Route: 065
  5. DIPHENHYDRAMINE HYDROCHLORIDE [Concomitant]
     Route: 065
  6. PROCRIT [Concomitant]
     Route: 065
  7. ESTROGENS, CONJUGATED [Concomitant]
     Route: 065
  8. FLUTICASONE PROPIONATE [Concomitant]
     Route: 065
  9. LASIX [Suspect]
     Route: 065
  10. PRINIVIL [Suspect]
     Route: 048
  11. PRINIVIL [Suspect]
     Route: 048
  12. INDERAL [Concomitant]
     Route: 065
  13. VITAMIN E [Concomitant]
     Route: 065

REACTIONS (13)
  - CARDIAC FAILURE CONGESTIVE [None]
  - GAMMOPATHY [None]
  - INFLUENZA LIKE ILLNESS [None]
  - LEUKOPENIA [None]
  - MARROW HYPERPLASIA [None]
  - MYELODYSPLASTIC SYNDROME [None]
  - NORMOCHROMIC NORMOCYTIC ANAEMIA [None]
  - PALPITATIONS [None]
  - PLASMA CELL DISORDER [None]
  - PLASMA CELLS DECREASED [None]
  - RED BLOOD CELL SEDIMENTATION RATE INCREASED [None]
  - THROMBOCYTOPENIA [None]
  - WEIGHT DECREASED [None]
